FAERS Safety Report 10055910 (Version 1)
Quarter: 2014Q2

REPORT INFORMATION
  Report Type: Spontaneous
  Country: NG (occurrence: NG)
  Receive Date: 20140403
  Receipt Date: 20140403
  Transmission Date: 20141212
  Serious: Yes (Other)
  Sender: FDA-Public Use
  Company Number: NG-ROCHE-1373176

PATIENT
  Age: 51 Year
  Sex: 0
  Weight: 114 kg

DRUGS (2)
  1. PEGASYS [Suspect]
     Indication: HEPATITIS C
     Route: 065
  2. RIBAVIRIN [Concomitant]
     Indication: HEPATITIS C
     Route: 065

REACTIONS (1)
  - Viral load increased [Not Recovered/Not Resolved]
